FAERS Safety Report 5675112-5 (Version None)
Quarter: 2008Q1

REPORT INFORMATION
  Report Type: 
  Country: None (occurrence: None)
  Receive Date: 20080320
  Receipt Date: 20080318
  Transmission Date: 20080703
  Serious: Yes (Hospitalization)
  Sender: FDA-Public Use
  Company Number: JP-JNJFOC-20080300530

PATIENT
  Sex: Male
  Weight: 48 kg

DRUGS (5)
  1. PALIPERIDONE [Suspect]
     Indication: SCHIZOPHRENIA
     Route: 048
  2. AMEZINIUM [Concomitant]
     Indication: HYPOTENSION
     Route: 048
  3. BROTIZOLAM [Concomitant]
     Indication: INSOMNIA
     Route: 048
  4. FLUNITRAZEPAM [Concomitant]
     Indication: INSOMNIA
     Route: 048
  5. ESTAZOLAM [Concomitant]
     Indication: INSOMNIA
     Route: 048

REACTIONS (1)
  - GASTRIC ULCER [None]
